FAERS Safety Report 8400444-7 (Version None)
Quarter: 2012Q2

REPORT INFORMATION
  Report Type: 
  Country: None (occurrence: None)
  Receive Date: 20120531
  Receipt Date: 20120525
  Transmission Date: 20120825
  Serious: Yes (Hospitalization)
  Sender: FDA-Public Use
  Company Number: ES-AMGEN-ESPCT2012028737

PATIENT
  Age: 42 Year
  Sex: Female
  Weight: 78 kg

DRUGS (10)
  1. DENOSUMAB [Suspect]
     Indication: BREAST CANCER
     Dosage: 120 MG, UNK
     Route: 058
     Dates: start: 20110330
  2. DEXCHLORPHENIRAMINE MALEATE [Concomitant]
     Dosage: 5 MG, UNK
     Route: 042
     Dates: start: 20110330
  3. BECLOMETHASONE DIPROPIONATE [Concomitant]
     Dosage: UNK
     Route: 061
     Dates: start: 20110415
  4. ANALGILASA [Concomitant]
     Dosage: UNK
     Route: 048
  5. IBUPROFEN [Concomitant]
     Dosage: 400 MG, UNK
     Route: 048
  6. VITAMIN D [Concomitant]
     Dosage: 400 IU, UNK
     Route: 048
     Dates: start: 20110330
  7. CALCIUM [Concomitant]
     Dosage: 500 MG, UNK
     Route: 048
     Dates: start: 20110330
  8. RANITIDINE [Concomitant]
     Dosage: 50 MG, UNK
     Route: 042
     Dates: start: 20110330
  9. ACETAMINOPHEN [Concomitant]
     Dosage: 500 MG, UNK
     Route: 042
     Dates: start: 20110330
  10. DEXAMETHASONE [Concomitant]
     Dosage: 10 MG, UNK
     Route: 042
     Dates: start: 20110330

REACTIONS (1)
  - PSYCHOTIC DISORDER [None]
